FAERS Safety Report 19441966 (Version 1)
Quarter: 2021Q2

REPORT INFORMATION
  Report Type: Spontaneous
  Country: US (occurrence: US)
  Receive Date: 20210621
  Receipt Date: 20210621
  Transmission Date: 20210717
  Serious: Yes (Hospitalization)
  Sender: FDA-Public Use
  Company Number: US-ABBVIE-21K-163-3957871-00

PATIENT
  Age: 48 Year
  Sex: Female
  Weight: 83.99 kg

DRUGS (11)
  1. HUMIRA [Suspect]
     Active Substance: ADALIMUMAB
     Indication: PSORIASIS
     Route: 058
     Dates: start: 202004
  2. MESALAMINE. [Concomitant]
     Active Substance: MESALAMINE
     Indication: CROHN^S DISEASE
  3. VITAMIN B12 [Concomitant]
     Active Substance: CYANOCOBALAMIN
     Indication: PRODUCT USED FOR UNKNOWN INDICATION
  4. OMEPRAZOLE. [Concomitant]
     Active Substance: OMEPRAZOLE
     Indication: DYSPEPSIA
  5. IRON [Concomitant]
     Active Substance: IRON
     Indication: PRODUCT USED FOR UNKNOWN INDICATION
  6. VITAMIN D3 [Concomitant]
     Active Substance: CHOLECALCIFEROL
     Indication: PRODUCT USED FOR UNKNOWN INDICATION
  7. HUMIRA [Suspect]
     Active Substance: ADALIMUMAB
     Indication: HIDRADENITIS
  8. HUMIRA [Suspect]
     Active Substance: ADALIMUMAB
     Indication: CROHN^S DISEASE
  9. COVID?19 VACCINE [Concomitant]
     Indication: COVID-19 IMMUNISATION
     Dosage: PFIZER
     Route: 030
     Dates: start: 20210323, end: 20210323
  10. COVID?19 VACCINE [Concomitant]
     Dosage: PFIZER
     Route: 030
     Dates: start: 20210413, end: 20210413
  11. VITAMIN C [Concomitant]
     Active Substance: ASCORBIC ACID
     Indication: PRODUCT USED FOR UNKNOWN INDICATION

REACTIONS (8)
  - Vomiting [Recovered/Resolved]
  - Poor quality product administered [Unknown]
  - Nausea [Recovered/Resolved]
  - Nausea [Recovered/Resolved]
  - Crohn^s disease [Unknown]
  - Intestinal obstruction [Recovered/Resolved]
  - Muscle spasms [Unknown]
  - Pain [Unknown]

NARRATIVE: CASE EVENT DATE: 202106
